FAERS Safety Report 18700241 (Version 1)
Quarter: 2021Q1

REPORT INFORMATION
  Report Type: Spontaneous
  Country: TW (occurrence: TW)
  Receive Date: 20210105
  Receipt Date: 20210105
  Transmission Date: 20210419
  Serious: Yes (Other)
  Sender: FDA-Public Use
  Company Number: TW-009507513-2101TWN000813

PATIENT
  Age: 35 Year

DRUGS (1)
  1. PEMBROLIZUMAB. [Suspect]
     Active Substance: PEMBROLIZUMAB
     Indication: BLADDER CANCER
     Dosage: 1 LINE

REACTIONS (3)
  - Neutropenia [Unknown]
  - Anaemia [Unknown]
  - Immune thrombocytopenia [Unknown]
